FAERS Safety Report 11876914 (Version 3)
Quarter: 2016Q1

REPORT INFORMATION
  Report Type: Report from Study
  Country: US (occurrence: US)
  Receive Date: 20151229
  Receipt Date: 20160121
  Transmission Date: 20160526
  Serious: No
  Sender: FDA-Public Use
  Company Number: US-AMGEN-USASL2015135998

PATIENT
  Age: 45 Year
  Sex: Female

DRUGS (1)
  1. ENBREL [Suspect]
     Active Substance: ETANERCEPT
     Indication: RHEUMATOID ARTHRITIS
     Dosage: 50 MG, TQW
     Route: 058
     Dates: start: 201511

REACTIONS (16)
  - Wrong technique in product usage process [Unknown]
  - Injection site pain [Unknown]
  - Memory impairment [Unknown]
  - Swelling [Recovered/Resolved]
  - Injection site swelling [Unknown]
  - Injection site reaction [Unknown]
  - Injection site warmth [Unknown]
  - Fibromyalgia [Unknown]
  - Pain in extremity [Unknown]
  - Musculoskeletal disorder [Unknown]
  - Malaise [Unknown]
  - Injection site pruritus [Not Recovered/Not Resolved]
  - Mobility decreased [Unknown]
  - Arthralgia [Unknown]
  - Feeling abnormal [Unknown]
  - Erythema [Recovered/Resolved]

NARRATIVE: CASE EVENT DATE: 2015
